FAERS Safety Report 7296731-9 (Version None)
Quarter: 2011Q1

REPORT INFORMATION
  Report Type: 
  Country: None (occurrence: None)
  Receive Date: 20110216
  Receipt Date: 20110214
  Transmission Date: 20110831
  Serious: Yes (Life-Threatening, Hospitalization, Congenital Anomaly)
  Sender: FDA-Public Use
  Company Number: A0681886A

PATIENT
  Sex: Female
  Weight: 4 kg

DRUGS (10)
  1. FLAGYL [Concomitant]
     Route: 064
     Dates: start: 19971101
  2. INSULIN [Concomitant]
     Route: 064
  3. MAGNESIUM SULFATE [Concomitant]
     Route: 064
     Dates: end: 19971101
  4. LIPITOR [Concomitant]
     Route: 064
  5. AMPICILLIN [Concomitant]
     Route: 064
     Dates: end: 19971101
  6. ACCUPRIL [Concomitant]
     Route: 064
  7. TYLENOL [Concomitant]
     Route: 064
  8. PAXIL [Suspect]
     Indication: POST-TRAUMATIC STRESS DISORDER
     Dosage: 20MG TWICE PER DAY
     Route: 064
     Dates: start: 19960101, end: 19970101
  9. PRENATAL VITAMINS [Concomitant]
     Route: 064
  10. CELESTONE [Concomitant]
     Route: 064
     Dates: start: 19971101

REACTIONS (42)
  - CONGENITAL HEART VALVE DISORDER [None]
  - CARDIAC MURMUR [None]
  - STAPHYLOCOCCAL INFECTION [None]
  - ELECTROCARDIOGRAM QT PROLONGED [None]
  - EBSTEIN'S ANOMALY [None]
  - LARGE FOR DATES BABY [None]
  - CARDIOMEGALY [None]
  - DEVELOPMENTAL DELAY [None]
  - NEONATAL ASPIRATION [None]
  - PERICARDIAL EFFUSION [None]
  - PULMONARY VALVE STENOSIS [None]
  - DYSPNOEA [None]
  - LEFT VENTRICULAR DYSFUNCTION [None]
  - FOETAL HEART RATE ABNORMAL [None]
  - LUNG DISORDER [None]
  - DEVICE RELATED SEPSIS [None]
  - GRAM STAIN POSITIVE [None]
  - DILATATION ATRIAL [None]
  - PNEUMONIA [None]
  - ALKALOSIS [None]
  - VENTRICULAR SEPTAL DEFECT [None]
  - TRICUSPID VALVE INCOMPETENCE [None]
  - RESPIRATORY FAILURE [None]
  - PATENT DUCTUS ARTERIOSUS [None]
  - CARDIAC FAILURE CONGESTIVE [None]
  - TRICUSPID VALVE PROLAPSE [None]
  - OEDEMA PERIPHERAL [None]
  - URETERAL DISORDER [None]
  - CONGENITAL CARDIOVASCULAR ANOMALY [None]
  - DRUG EXPOSURE DURING PREGNANCY [None]
  - FALLOT'S TETRALOGY [None]
  - ATRIAL SEPTAL DEFECT [None]
  - VENTRICULAR HYPERTROPHY [None]
  - CYANOSIS [None]
  - SUPRAVENTRICULAR EXTRASYSTOLES [None]
  - WOUND [None]
  - TRICUSPID VALVE DISEASE [None]
  - PLEURAL EFFUSION [None]
  - PERSISTENT FOETAL CIRCULATION [None]
  - ATRIOVENTRICULAR BLOCK [None]
  - VASODILATATION [None]
  - PNEUMOTHORAX [None]
